FAERS Safety Report 24216817 (Version 2)
Quarter: 2024Q3

REPORT INFORMATION
  Report Type: Report from Study
  Country: US (occurrence: US)
  Receive Date: 20240816
  Receipt Date: 20240918
  Transmission Date: 20241017
  Serious: No
  Sender: ALEXION PHARMACEUTICALS
  Company Number: US-ALXN-A202200881

PATIENT
  Sex: Female

DRUGS (1)
  1. STRENSIQ [Suspect]
     Active Substance: ASFOTASE ALFA
     Indication: Hypophosphatasia
     Dosage: UNK
     Route: 065
     Dates: start: 2018

REACTIONS (17)
  - Cognitive disorder [Not Recovered/Not Resolved]
  - Dizziness [Recovered/Resolved]
  - Therapeutic response decreased [Not Recovered/Not Resolved]
  - Malaise [Not Recovered/Not Resolved]
  - Muscle spasms [Not Recovered/Not Resolved]
  - Pain [Not Recovered/Not Resolved]
  - Memory impairment [Unknown]
  - Brain fog [Unknown]
  - Pain in extremity [Unknown]
  - Symptom recurrence [Unknown]
  - Back pain [Unknown]
  - Bone pain [Unknown]
  - Gait disturbance [Unknown]
  - Arthralgia [Unknown]
  - Peripheral coldness [Unknown]
  - Blood alkaline phosphatase decreased [Unknown]
  - General physical health deterioration [Unknown]
